FAERS Safety Report 4576178-6 (Version None)
Quarter: 2005Q1

REPORT INFORMATION
  Report Type: 
  Country: None (occurrence: None)
  Receive Date: 20050204
  Receipt Date: 20050124
  Transmission Date: 20050727
  Serious: Yes (Hospitalization)
  Sender: FDA-Public Use
  Company Number: 2005AP00309

PATIENT
  Age: 84 Year
  Sex: Male
  Weight: 57 kg

DRUGS (9)
  1. IRESSA [Suspect]
     Indication: NON-SMALL CELL LUNG CANCER
     Dosage: 250 MG DAILY PO
     Route: 048
     Dates: start: 20020906, end: 20050114
  2. WARFARIN SODIUM [Concomitant]
  3. GASTER D [Concomitant]
  4. WAPLON-P [Concomitant]
  5. COVERSYL [Concomitant]
  6. LANIRAPID [Concomitant]
  7. LASIX [Concomitant]
  8. MAGNESIUM OXIDE [Concomitant]
  9. ALOSENN [Concomitant]

REACTIONS (3)
  - ABDOMINAL PAIN UPPER [None]
  - COLITIS EROSIVE [None]
  - RASH GENERALISED [None]
